FAERS Safety Report 8182942-7 (Version None)
Quarter: 2012Q1

REPORT INFORMATION
  Report Type: 
  Country: None (occurrence: None)
  Receive Date: 20120305
  Receipt Date: 20120228
  Transmission Date: 20120608
  Serious: Yes (Death, Life-Threatening, Hospitalization, Disabling, Other)
  Sender: FDA-Public Use
  Company Number: JP-CELGENEUS-087-21880-11050840

PATIENT
  Sex: Male

DRUGS (12)
  1. REVLIMID [Suspect]
     Dosage: 10 MILLIGRAM
     Route: 048
     Dates: start: 20101219, end: 20101221
  2. DEXAMETHASONE ACETATE [Suspect]
     Indication: MULTIPLE MYELOMA
     Dosage: 20 MILLIGRAM
     Route: 048
     Dates: start: 20101219, end: 20101221
  3. OLMESARTAN MEDOXOMIL [Concomitant]
     Dosage: 20 MILLIGRAM
     Route: 048
     Dates: start: 20091205, end: 20110408
  4. NORVASC [Concomitant]
     Dosage: 5 MILLIGRAM
     Route: 048
     Dates: start: 20091205, end: 20110408
  5. URSO 250 [Concomitant]
     Dosage: 600 MILLIGRAM
     Route: 048
     Dates: start: 20091205, end: 20110408
  6. OMEPRAZOLE [Concomitant]
     Dosage: 20 MILLIGRAM
     Route: 048
     Dates: start: 20091205, end: 20110408
  7. ALLEGRA [Concomitant]
     Dosage: 120 MILLIGRAM
     Route: 048
     Dates: start: 20091205, end: 20110408
  8. BACTRIM [Concomitant]
     Dosage: 1 TABLET
     Route: 048
     Dates: start: 20091205, end: 20110408
  9. ALOSENN [Concomitant]
     Dosage: 1 GRAM
     Route: 048
     Dates: start: 20091205, end: 20110408
  10. DEXAMETHASONE [Concomitant]
     Indication: MULTIPLE MYELOMA
     Dosage: 20 MILLIGRAM
     Route: 041
     Dates: start: 20101121, end: 20101210
  11. PRAVASTATIN SODIUM [Concomitant]
     Dosage: 5 MILLIGRAM
     Route: 048
     Dates: start: 20091205, end: 20110408
  12. REVLIMID [Suspect]
     Indication: MULTIPLE MYELOMA
     Dosage: 10 MILLIGRAM
     Route: 048
     Dates: start: 20101121, end: 20101211

REACTIONS (5)
  - PLATELET COUNT DECREASED [None]
  - DEATH [None]
  - SEPSIS [None]
  - PANCYTOPENIA [None]
  - RENAL FAILURE [None]
